FAERS Safety Report 6057332-3 (Version None)
Quarter: 2009Q1

REPORT INFORMATION
  Report Type: 
  Country: None (occurrence: None)
  Receive Date: 20090129
  Receipt Date: 20081110
  Transmission Date: 20090719
  Serious: Yes (Life-Threatening, Hospitalization, Disabling, Other)
  Sender: FDA-Public Use
  Company Number: A0753286A

PATIENT
  Age: 48 Year
  Sex: Female
  Weight: 81.8 kg

DRUGS (5)
  1. BUPROPION HYDROCHLORIDE [Suspect]
     Indication: DEPRESSION
     Dosage: 75MG IN THE MORNING
     Route: 048
     Dates: start: 20070101, end: 20081001
  2. LAMICTAL [Suspect]
     Dosage: 100MG TWICE PER DAY
     Route: 048
     Dates: start: 20070101, end: 20080829
  3. AMBIEN [Concomitant]
     Indication: INSOMNIA
     Dates: start: 20081001
  4. RISPERDAL [Concomitant]
     Route: 048
     Dates: start: 20070101, end: 20080901
  5. ATIVAN [Concomitant]
     Indication: ANXIETY
     Route: 048
     Dates: start: 20081001

REACTIONS (2)
  - MANIA [None]
  - RASH [None]
